FAERS Safety Report 17225710 (Version 2)
Quarter: 2020Q1

REPORT INFORMATION
  Report Type: Spontaneous
  Country: FR (occurrence: FR)
  Receive Date: 20200102
  Receipt Date: 20200210
  Transmission Date: 20200409
  Serious: Yes (Other)
  Sender: FDA-Public Use
  Company Number: FR-MYLANLABS-2019M1132354

PATIENT
  Age: 81 Year
  Sex: Female
  Weight: 71 kg

DRUGS (7)
  1. CYCLOPHOSPHAMIDE. [Suspect]
     Active Substance: CYCLOPHOSPHAMIDE
     Dosage: THIRD CURE OF EC 75
     Route: 041
     Dates: start: 20180613
  2. CYCLOPHOSPHAMIDE. [Suspect]
     Active Substance: CYCLOPHOSPHAMIDE
     Indication: BREAST CANCER
     Dosage: UNK UNK, CYCLE
     Route: 041
     Dates: start: 20180502, end: 20180613
  3. EPIRUBICIN [Suspect]
     Active Substance: EPIRUBICIN
     Indication: BREAST CANCER
     Dosage: UNK UNK, CYCLE
     Dates: start: 20180502, end: 20180613
  4. EPIRUBICIN [Suspect]
     Active Substance: EPIRUBICIN
     Dosage: SECOND CURE OF EC75 WAS ADMINISTRATED
     Route: 041
     Dates: start: 20180524
  5. EPIRUBICIN [Suspect]
     Active Substance: EPIRUBICIN
     Dosage: THIRD CURE OF EC 75
     Route: 041
     Dates: start: 20180613
  6. EPIRUBICIN [Suspect]
     Active Substance: EPIRUBICIN
     Dosage: 75 MILLIGRAM/SQ. METER (75 MG/M2, UNK)
     Route: 041
     Dates: start: 20180502
  7. CYCLOPHOSPHAMIDE. [Suspect]
     Active Substance: CYCLOPHOSPHAMIDE
     Dosage: SECOND CURE OF EC75 WAS ADMINISTRATED
     Route: 041
     Dates: start: 20180524

REACTIONS (8)
  - Dermatitis [Unknown]
  - Subacute cutaneous lupus erythematosus [Unknown]
  - Rash [Unknown]
  - Erythema [Unknown]
  - Skin abrasion [Unknown]
  - Epidermal necrosis [Unknown]
  - Acute cutaneous lupus erythematosus [Not Recovered/Not Resolved]
  - Skin lesion [Unknown]

NARRATIVE: CASE EVENT DATE: 2018
